FAERS Safety Report 6303698-6 (Version None)
Quarter: 2009Q3

REPORT INFORMATION
  Report Type: 
  Country: None (occurrence: None)
  Receive Date: 20090807
  Receipt Date: 20090807
  Transmission Date: 20100115
  Serious: No
  Sender: FDA-Public Use
  Company Number: None

PATIENT
  Age: 66 Year
  Sex: Female
  Weight: 117.9352 kg

DRUGS (1)
  1. LEVAQUIN [Suspect]
     Indication: SINUSITIS
     Dosage: 1 TABLET, DAILY, PO
     Route: 048
     Dates: start: 20090708, end: 20090712

REACTIONS (5)
  - ARTHRALGIA [None]
  - ARTHROPATHY [None]
  - TENDON DISORDER [None]
  - WALKING AID USER [None]
  - WEIGHT BEARING DIFFICULTY [None]
